FAERS Safety Report 22840343 (Version 6)
Quarter: 2024Q1

REPORT INFORMATION
  Report Type: Report from Study
  Country: US (occurrence: US)
  Receive Date: 20230819
  Receipt Date: 20240131
  Transmission Date: 20240409
  Serious: No
  Sender: FDA-Public Use
  Company Number: US-002147023-NVSC2023US180853

PATIENT
  Age: 38 Year
  Sex: Female

DRUGS (5)
  1. COSENTYX [Suspect]
     Active Substance: SECUKINUMAB
     Indication: Psoriasis
     Dosage: 300 MG, QMO
     Route: 058
     Dates: start: 20230216
  2. TRIAMCINOLONE ACETONIDE [Suspect]
     Active Substance: TRIAMCINOLONE ACETONIDE
     Indication: Psoriasis
     Dosage: UNK
     Route: 065
  3. CLOBETASOL [Suspect]
     Active Substance: CLOBETASOL
     Indication: Psoriasis
     Dosage: UNK
     Route: 065
  4. KETOCONAZOLE [Suspect]
     Active Substance: KETOCONAZOLE
     Indication: Psoriasis
     Dosage: UNK
     Route: 065
  5. BETAMETHASONE DIPROPIONATE [Suspect]
     Active Substance: BETAMETHASONE DIPROPIONATE
     Indication: Psoriasis
     Dosage: UNK
     Route: 065

REACTIONS (6)
  - Urticaria [Unknown]
  - Psoriasis [Unknown]
  - Pruritus [Unknown]
  - Skin exfoliation [Unknown]
  - Therapeutic product effect incomplete [Unknown]
  - Treatment failure [Unknown]

NARRATIVE: CASE EVENT DATE: 20230801
